FAERS Safety Report 10438621 (Version 2)
Quarter: 2014Q3

REPORT INFORMATION
  Report Type: Spontaneous
  Country: BR (occurrence: BR)
  Receive Date: 20140908
  Receipt Date: 20140914
  Transmission Date: 20150326
  Serious: Yes (Death, Hospitalization, Other)
  Sender: FDA-Public Use
  Company Number: PHHY2014BR115100

PATIENT
  Sex: Female
  Weight: 62.5 kg

DRUGS (6)
  1. CALCIUM CARBONATE. [Concomitant]
     Active Substance: CALCIUM CARBONATE
  2. ENALAPRIL [Concomitant]
     Active Substance: ENALAPRIL
     Dosage: UNK
  3. EXJADE [Suspect]
     Active Substance: DEFERASIROX
     Indication: SICKLE CELL ANAEMIA
     Dosage: 20 MG/KG, QD (1250 MG, DAILY) (2 TABLETS OF 500 MG AND 1 OF 250 MG)
     Route: 048
     Dates: start: 20140109, end: 20140313
  4. ALENDRONATE [Concomitant]
     Active Substance: ALENDRONATE SODIUM
  5. ACIDO FOLICO//FOLIC ACID [Concomitant]
  6. VITAMIN D3 [Concomitant]
     Active Substance: CHOLECALCIFEROL

REACTIONS (14)
  - Alanine aminotransferase increased [Fatal]
  - Haemorrhage [Unknown]
  - Prothrombin time prolonged [Fatal]
  - Hepatitis fulminant [Fatal]
  - Aspartate aminotransferase increased [Fatal]
  - Shock [Fatal]
  - Blood bilirubin increased [Fatal]
  - Skin ulcer [Unknown]
  - Drug-induced liver injury [Unknown]
  - Multi-organ failure [Fatal]
  - Septic shock [Fatal]
  - Encephalopathy [Fatal]
  - Cardiac arrest [Fatal]
  - Pyrexia [Unknown]
